FAERS Safety Report 6299842-X (Version None)
Quarter: 2009Q3

REPORT INFORMATION
  Report Type: 
  Country: None (occurrence: None)
  Receive Date: 20090806
  Receipt Date: 20090727
  Transmission Date: 20100115
  Serious: Yes (Other)
  Sender: FDA-Public Use
  Company Number: US-ABBOTT-09P-163-0584046-00

PATIENT
  Sex: Male
  Weight: 61.29 kg

DRUGS (4)
  1. HUMIRA [Suspect]
     Indication: RHEUMATOID ARTHRITIS
     Dates: start: 20080101, end: 20090301
  2. HUMIRA [Suspect]
     Dates: start: 20090601
  3. ANACIN [Concomitant]
     Indication: RHEUMATOID ARTHRITIS
  4. DARVOCET [Concomitant]
     Indication: ARTHRALGIA

REACTIONS (3)
  - DENTAL CARIES [None]
  - TOOTH ABSCESS [None]
  - TOOTH FRACTURE [None]
